FAERS Safety Report 8248222-6 (Version None)
Quarter: 2012Q1

REPORT INFORMATION
  Report Type: 
  Country: None (occurrence: None)
  Receive Date: 20120330
  Receipt Date: 20120326
  Transmission Date: 20120608
  Serious: Yes (Other)
  Sender: FDA-Public Use
  Company Number: US-PFIZER INC-2012067257

PATIENT
  Sex: Female

DRUGS (1)
  1. LYRICA [Suspect]
     Dosage: UNK

REACTIONS (5)
  - BONE PAIN [None]
  - MYALGIA [None]
  - MALAISE [None]
  - WITHDRAWAL SYNDROME [None]
  - PAIN [None]
